FAERS Safety Report 5656561-8 (Version None)
Quarter: 2008Q1

REPORT INFORMATION
  Report Type: 
  Country: None (occurrence: None)
  Receive Date: 20080310
  Receipt Date: 20080228
  Transmission Date: 20080703
  Serious: Yes (Other)
  Sender: FDA-Public Use
  Company Number: BR-JNJFOC-20080300481

PATIENT
  Age: 23 Year
  Sex: Female
  Weight: 55 kg

DRUGS (1)
  1. ACETAMINOPHEN W/ CODEINE [Suspect]
     Indication: PAIN
     Route: 048

REACTIONS (2)
  - DIZZINESS [None]
  - EPISTAXIS [None]
